FAERS Safety Report 9133541 (Version 1)
Quarter: 2013Q1

REPORT INFORMATION
  Report Type: Spontaneous
  Country: US (occurrence: US)
  Receive Date: 20130124
  Receipt Date: 20130124
  Transmission Date: 20140127
  Serious: Yes (Other)
  Sender: FDA-Public Use
  Company Number: US-BRACCO-007713

PATIENT
  Age: 73 Year
  Sex: Male
  Weight: 126 kg

DRUGS (2)
  1. MULTIHANCE [Suspect]
     Indication: NUCLEAR MAGNETIC RESONANCE IMAGING ABDOMINAL
     Route: 042
     Dates: start: 20120314, end: 20120314
  2. MULTIHANCE [Suspect]
     Indication: MASS
     Route: 042
     Dates: start: 20120314, end: 20120314

REACTIONS (1)
  - Anaphylactoid reaction [Recovered/Resolved]
